FAERS Safety Report 25480406 (Version 3)
Quarter: 2025Q3

REPORT INFORMATION
  Report Type: Spontaneous
  Country: EU (occurrence: EU)
  Receive Date: 20250625
  Receipt Date: 20250724
  Transmission Date: 20251021
  Serious: Yes (Life-Threatening, Hospitalization, Other)
  Sender: PFIZER
  Company Number: EU-PFIZER INC-PV202500075620

PATIENT
  Age: 69 Year
  Sex: Male

DRUGS (4)
  1. METHOTREXATE [Suspect]
     Active Substance: METHOTREXATE
     Indication: Rheumatoid arthritis
     Dosage: 6 DF, WEEKLY
     Route: 048
     Dates: start: 20241113
  2. METHOTREXATE [Suspect]
     Active Substance: METHOTREXATE
     Dosage: 8 DF, WEEKLY
     Dates: start: 20250429
  3. METHOTREXATE [Suspect]
     Active Substance: METHOTREXATE
     Dosage: 6 DF, WEEKLY
     Dates: start: 20250513
  4. PREDNISOLONE [Concomitant]
     Active Substance: PREDNISOLONE

REACTIONS (3)
  - Cardiac arrest [Recovered/Resolved]
  - Arrhythmia [Recovered/Resolved]
  - Musculoskeletal stiffness [Unknown]

NARRATIVE: CASE EVENT DATE: 20250101
